FAERS Safety Report 12717393 (Version 1)
Quarter: 2016Q3

REPORT INFORMATION
  Report Type: Spontaneous
  Country: US (occurrence: US)
  Receive Date: 20160906
  Receipt Date: 20160906
  Transmission Date: 20161109
  Serious: Yes (Other)
  Sender: FDA-Public Use
  Company Number: None

PATIENT
  Age: 62 Year
  Sex: Female
  Weight: 76.5 kg

DRUGS (9)
  1. VALIUM [Concomitant]
     Active Substance: DIAZEPAM
  2. WHOLE BEET PULP PILLS [Concomitant]
  3. TUMERIC [Concomitant]
     Active Substance: TURMERIC
  4. DEMEROL [Concomitant]
     Active Substance: MEPERIDINE HYDROCHLORIDE
  5. HARVONI [Suspect]
     Active Substance: LEDIPASVIR\SOFOSBUVIR
     Indication: HEPATITIS C
     Route: 048
     Dates: start: 20160418, end: 20160711
  6. TRAZODONE [Concomitant]
     Active Substance: TRAZODONE HYDROCHLORIDE
  7. MSM JOINT RELIEF [Concomitant]
  8. PHENERGAN [Concomitant]
     Active Substance: PROMETHAZINE HYDROCHLORIDE
  9. GINGER. [Concomitant]
     Active Substance: GINGER

REACTIONS (6)
  - Back pain [None]
  - Malaise [None]
  - Vomiting [None]
  - Gastrointestinal disorder [None]
  - Pain in extremity [None]
  - Arthralgia [None]
